FAERS Safety Report 8059433-7 (Version None)
Quarter: 2012Q1

REPORT INFORMATION
  Report Type: 
  Country: None (occurrence: None)
  Receive Date: 20120120
  Receipt Date: 20120112
  Transmission Date: 20120608
  Serious: Yes (Hospitalization, Other)
  Sender: FDA-Public Use
  Company Number: JP-NOVOPROD-334840

PATIENT
  Age: 92 Year
  Sex: Male
  Weight: 64 kg

DRUGS (7)
  1. VICTOZA [Suspect]
     Dosage: 0.6 MG, UNK
     Route: 058
     Dates: start: 20111001, end: 20111008
  2. UBRETID [Concomitant]
     Dosage: 5 MG, QD
     Dates: start: 20110722
  3. VICTOZA [Suspect]
     Dosage: UNK
     Route: 058
     Dates: start: 20110912
  4. VICTOZA [Suspect]
     Indication: TYPE 2 DIABETES MELLITUS
     Dosage: 0.3 MG, QD
     Route: 058
     Dates: start: 20110904, end: 20110905
  5. PLETAL [Concomitant]
     Dosage: 100 MG, QD
     Route: 048
  6. URIEF [Concomitant]
     Dosage: 8 MG, QD
     Route: 048
     Dates: start: 20110722
  7. SENNOSIDE                          /00571901/ [Concomitant]
     Dosage: UNK
     Dates: start: 20110908

REACTIONS (7)
  - PYREXIA [None]
  - WEIGHT DECREASED [None]
  - DECREASED APPETITE [None]
  - NAUSEA [None]
  - VOMITING [None]
  - CONSTIPATION [None]
  - BLOOD CREATINE PHOSPHOKINASE INCREASED [None]
